FAERS Safety Report 22364703 (Version 1)
Quarter: 2023Q2

REPORT INFORMATION
  Report Type: Spontaneous
  Country: US (occurrence: US)
  Receive Date: 20230525
  Receipt Date: 20230525
  Transmission Date: 20230721
  Serious: Yes (Hospitalization, Other)
  Sender: FDA-Public Use
  Company Number: US-APOTEX-2023AP008392

PATIENT
  Age: 21 Year
  Sex: Male

DRUGS (2)
  1. FENTANYL [Suspect]
     Active Substance: FENTANYL
     Indication: Product used for unknown indication
     Dosage: UNK UNK, QD
  2. ALPRAZOLAM [Concomitant]
     Active Substance: ALPRAZOLAM
     Indication: Anxiety
     Dosage: 1 MILLIGRAM, QD
     Route: 065

REACTIONS (13)
  - Hallucination, visual [Recovering/Resolving]
  - Pain [Recovering/Resolving]
  - Chills [Recovering/Resolving]
  - Rhinorrhoea [Recovering/Resolving]
  - Yawning [Recovering/Resolving]
  - Restlessness [Recovering/Resolving]
  - Anxiety [Recovering/Resolving]
  - Agitation [Recovering/Resolving]
  - Drug abuse [Unknown]
  - Diarrhoea [Recovering/Resolving]
  - Vomiting [Recovering/Resolving]
  - Nausea [Recovering/Resolving]
  - Drug withdrawal syndrome [Recovering/Resolving]
